FAERS Safety Report 8806699 (Version 1)
Quarter: 2012Q4

REPORT INFORMATION
  Report Type: 
  Country: GB (occurrence: GB)
  Receive Date: 20120925
  Receipt Date: 20120925
  Transmission Date: 20130627
  Serious: Yes (Other)
  Sender: FDA-Public Use
  Company Number: PHHY2012GB082080

PATIENT

DRUGS (2)
  1. CICLOSPORIN [Suspect]
     Indication: PROPHYLAXIS AGAINST GRAFT VERSUS HOST DISEASE
  2. IMMUNOGLOBULINS [Concomitant]
     Route: 042

REACTIONS (5)
  - Delayed puberty [Unknown]
  - Blast cell proliferation [Unknown]
  - Leukopenia [Unknown]
  - Epstein-Barr virus infection [Unknown]
  - Alopecia [Unknown]
